FAERS Safety Report 25590130 (Version 1)
Quarter: 2025Q3

REPORT INFORMATION
  Report Type: Spontaneous
  Country: AR (occurrence: AR)
  Receive Date: 20250722
  Receipt Date: 20250722
  Transmission Date: 20251020
  Serious: Yes (Hospitalization)
  Sender: NOVO NORDISK
  Company Number: AR-NOVOPROD-1480593

PATIENT
  Age: 2 Year
  Sex: Female

DRUGS (2)
  1. OZEMPIC [Suspect]
     Active Substance: SEMAGLUTIDE
     Indication: Obesity
  2. OZEMPIC [Suspect]
     Active Substance: SEMAGLUTIDE
     Indication: Metabolic disorder
     Route: 063
     Dates: start: 20250708, end: 20250708

REACTIONS (2)
  - Pallor [Recovered/Resolved]
  - Exposure via breast milk [Recovered/Resolved]

NARRATIVE: CASE EVENT DATE: 20250708
